FAERS Safety Report 8582044-1 (Version None)
Quarter: 2012Q3

REPORT INFORMATION
  Report Type: 
  Country: None (occurrence: None)
  Receive Date: 20120809
  Receipt Date: 20120802
  Transmission Date: 20120928
  Serious: Yes (Hospitalization, Disabling, Other)
  Sender: FDA-Public Use
  Company Number: NO-PFIZER INC-2012134613

PATIENT
  Age: 56 Year
  Sex: Male

DRUGS (3)
  1. LIPITOR [Suspect]
     Dosage: 40 MG, 1X/DAY
     Route: 048
     Dates: start: 20120110, end: 20120610
  2. LIPITOR [Suspect]
     Indication: HYPERCHOLESTEROLAEMIA
     Dosage: 20 MG, 1X/DAY
     Dates: start: 20110101
  3. COZAAR [Concomitant]
     Indication: HYPERTENSION
     Dosage: 50 MG, 1X/DAY
     Route: 048

REACTIONS (7)
  - RENAL FAILURE [None]
  - MYOPATHY [None]
  - RHABDOMYOLYSIS [None]
  - POLYMYALGIA RHEUMATICA [None]
  - MYOSITIS [None]
  - DISTURBANCE IN ATTENTION [None]
  - DIABETES MELLITUS [None]
